FAERS Safety Report 24680790 (Version 2)
Quarter: 2025Q3

REPORT INFORMATION
  Report Type: Spontaneous
  Country: TH (occurrence: TH)
  Receive Date: 20241129
  Receipt Date: 20250803
  Transmission Date: 20251021
  Serious: Yes (Other)
  Sender: ALEXION PHARMACEUTICALS
  Company Number: TH-ASTRAZENECA-202410ASI014249TH

PATIENT
  Age: 7 Year
  Sex: Female
  Weight: 18 kg

DRUGS (1)
  1. KOSELUGO [Suspect]
     Active Substance: SELUMETINIB
     Dosage: TOTAL DAILY DOSE 40 MG
     Dates: start: 20231218

REACTIONS (2)
  - Blood creatine phosphokinase MB increased [Unknown]
  - Myalgia [Unknown]

NARRATIVE: CASE EVENT DATE: 20241007
